FAERS Safety Report 19882896 (Version 1)
Quarter: 2021Q3

REPORT INFORMATION
  Report Type: Spontaneous
  Country: AU (occurrence: AU)
  Receive Date: 20210924
  Receipt Date: 20210924
  Transmission Date: 20211014
  Serious: Yes (Other)
  Sender: FDA-Public Use
  Company Number: AU-AMGEN-AUSSP2021146075

PATIENT
  Age: 54 Year
  Sex: Female

DRUGS (4)
  1. FILGRASTIM [Suspect]
     Active Substance: FILGRASTIM
     Indication: PROPHYLAXIS
     Route: 065
  2. IDARUBICIN [Concomitant]
     Active Substance: IDARUBICIN
  3. FLUDARABINE [Concomitant]
     Active Substance: FLUDARABINE PHOSPHATE
  4. CYTARABINE. [Concomitant]
     Active Substance: CYTARABINE

REACTIONS (8)
  - Mycobacterium abscessus infection [Recovered/Resolved]
  - Graft versus host disease in liver [Unknown]
  - Chronic graft versus host disease oral [Unknown]
  - Immune reconstitution inflammatory syndrome [Recovered/Resolved]
  - Chronic graft versus host disease in skin [Unknown]
  - Chronic graft versus host disease in eye [Unknown]
  - Febrile neutropenia [Unknown]
  - C-reactive protein increased [Unknown]
